FAERS Safety Report 19269692 (Version 1)
Quarter: 2021Q2

REPORT INFORMATION
  Report Type: Spontaneous
  Country: US (occurrence: US)
  Receive Date: 20210518
  Receipt Date: 20210518
  Transmission Date: 20210717
  Serious: No
  Sender: FDA-Public Use
  Company Number: US-BEH-2021131763

PATIENT
  Sex: Female

DRUGS (1)
  1. PRIVIGEN [Suspect]
     Active Substance: HUMAN IMMUNOGLOBULIN G
     Indication: ORAL MUCOSAL BLISTERING
     Dosage: 3 CYCLES
     Route: 065

REACTIONS (2)
  - Oral mucosal blistering [Unknown]
  - Off label use [Unknown]
